FAERS Safety Report 23533135 (Version 1)
Quarter: 2024Q1

REPORT INFORMATION
  Report Type: Spontaneous
  Country: US (occurrence: None)
  Receive Date: 20240216
  Receipt Date: 20240216
  Transmission Date: 20240410
  Serious: Yes (Hospitalization, Other)
  Sender: FDA-Public Use
  Company Number: None

PATIENT
  Age: 58 Year
  Sex: Female
  Weight: 108 kg

DRUGS (1)
  1. OZEMPIC [Suspect]
     Active Substance: SEMAGLUTIDE
     Indication: Diabetes mellitus
     Dates: start: 20210408, end: 20240130

REACTIONS (7)
  - Pain [None]
  - Vomiting [None]
  - Dehydration [None]
  - Hypophagia [None]
  - Renal disorder [None]
  - Pancreatic disorder [None]
  - Cholelithiasis [None]

NARRATIVE: CASE EVENT DATE: 20240209
